FAERS Safety Report 9774155 (Version 1)
Quarter: 2013Q4

REPORT INFORMATION
  Report Type: Spontaneous
  Country: US (occurrence: US)
  Receive Date: 20131220
  Receipt Date: 20131220
  Transmission Date: 20140711
  Serious: No
  Sender: FDA-Public Use
  Company Number: US-009507513-1312USA007263

PATIENT
  Sex: Male

DRUGS (3)
  1. INTRONA [Suspect]
     Indication: PLATELET COUNT ABNORMAL
     Dosage: 10 MILLION UNITS/^MONDAY, WEDNESDAY, AND FRIDAY^, INJECTION
     Dates: start: 201211
  2. PRINIVIL [Concomitant]
  3. ANAGRELIDE HYDROCHLORIDE [Concomitant]

REACTIONS (2)
  - Drug ineffective for unapproved indication [Recovering/Resolving]
  - Product quality issue [Unknown]
